FAERS Safety Report 23257674 (Version 1)
Quarter: 2023Q4

REPORT INFORMATION
  Report Type: Spontaneous
  Country: GB (occurrence: GB)
  Receive Date: 20231204
  Receipt Date: 20231204
  Transmission Date: 20240110
  Serious: Yes (Hospitalization, Disabling, Other)
  Sender: FDA-Public Use
  Company Number: None

PATIENT
  Age: 60 Year
  Sex: Female
  Weight: 48 kg

DRUGS (1)
  1. DUPIXENT [Suspect]
     Active Substance: DUPILUMAB
     Indication: Eczema
     Dosage: UNK
     Dates: start: 20230905, end: 20230906

REACTIONS (9)
  - Rash erythematous [Not Recovered/Not Resolved]
  - Eosinophil count increased [Unknown]
  - Burning sensation [Not Recovered/Not Resolved]
  - Joint stiffness [Unknown]
  - Spinal pain [Unknown]
  - Malaise [Unknown]
  - Functional gastrointestinal disorder [Unknown]
  - Bladder dysfunction [Unknown]
  - Arthralgia [Unknown]

NARRATIVE: CASE EVENT DATE: 20231024
